FAERS Safety Report 24722758 (Version 1)
Quarter: 2024Q4

REPORT INFORMATION
  Report Type: Spontaneous
  Country: GR (occurrence: GR)
  Receive Date: 20241211
  Receipt Date: 20241211
  Transmission Date: 20250114
  Serious: Yes (Other)
  Sender: BAXTER
  Company Number: GR-BAXTER-2023BAX010041

PATIENT
  Sex: Male

DRUGS (7)
  1. CYCLOPHOSPHAMIDE [Suspect]
     Active Substance: CYCLOPHOSPHAMIDE
     Indication: Richter^s syndrome
     Dosage: DRUG SEPARATE DOSAGE NUMBER: 1, POWDER FOR INFUSION
     Route: 065
  2. DOXORUBICIN [Suspect]
     Active Substance: DOXORUBICIN
     Indication: Richter^s syndrome
     Dosage: DRUG SEPARATE DOSAGE NUMBER:1, SOLUTION FOR INFUSION
     Route: 065
  3. POLIVY [Suspect]
     Active Substance: POLATUZUMAB VEDOTIN-PIIQ
     Indication: Richter^s syndrome
     Dosage: DRUG SEPARATE DOSAGE NUMBER: 1
     Route: 065
  4. IMBRUVICA [Suspect]
     Active Substance: IBRUTINIB
     Indication: Richter^s syndrome
     Dosage: DRUG SEPARATE DOSAGE NUMBER: 1
     Route: 048
  5. RITUXIMAB [Suspect]
     Active Substance: RITUXIMAB
     Indication: Richter^s syndrome
     Dosage: DRUG SEPARATE DOSAGE NUMBER: 1
     Route: 065
  6. VINCRISTINE [Suspect]
     Active Substance: VINCRISTINE
     Indication: Richter^s syndrome
     Dosage: DRUG SEPARATE DOSAGE NUMBER: 1
     Route: 065
  7. PREDNISOLONE [Suspect]
     Active Substance: PREDNISOLONE
     Indication: Richter^s syndrome
     Dosage: DRUG SEPARATE DOSAGE NUMBER: 1
     Route: 065

REACTIONS (3)
  - COVID-19 [Recovered/Resolved]
  - Richter^s syndrome [Unknown]
  - Disease progression [Unknown]
